FAERS Safety Report 22396963 (Version 1)
Quarter: 2023Q2

REPORT INFORMATION
  Report Type: Spontaneous
  Country: CA (occurrence: None)
  Receive Date: 20230602
  Receipt Date: 20230602
  Transmission Date: 20230721
  Serious: Yes (Other)
  Sender: FDA-Public Use
  Company Number: CA-ROCHE-3359328

PATIENT
  Age: 64 Year
  Sex: Male
  Weight: 92 kg

DRUGS (5)
  1. BEVACIZUMAB [Suspect]
     Active Substance: BEVACIZUMAB
     Indication: Glioblastoma
     Route: 040
  2. BEVACIZUMAB [Suspect]
     Active Substance: BEVACIZUMAB
     Route: 040
  3. BEVACIZUMAB [Suspect]
     Active Substance: BEVACIZUMAB
     Route: 040
  4. BEVACIZUMAB [Suspect]
     Active Substance: BEVACIZUMAB
     Route: 040
  5. BEVACIZUMAB [Suspect]
     Active Substance: BEVACIZUMAB
     Route: 040

REACTIONS (3)
  - Fatigue [Not Recovered/Not Resolved]
  - Glioblastoma [Not Recovered/Not Resolved]
  - Off label use [Unknown]
